FAERS Safety Report 21732352 (Version 1)
Quarter: 2022Q4

REPORT INFORMATION
  Report Type: Spontaneous
  Country: US (occurrence: US)
  Receive Date: 20221215
  Receipt Date: 20221215
  Transmission Date: 20230113
  Serious: No
  Sender: FDA-Public Use
  Company Number: US-NOVEN PHARMACEUTICALS, INC.-2022-NOV-US000186

PATIENT
  Age: 11 Year
  Sex: Male

DRUGS (1)
  1. DAYTRANA [Suspect]
     Active Substance: METHYLPHENIDATE
     Indication: Attention deficit hyperactivity disorder
     Dosage: 10 MG/ 9 HOURS, UNK
     Route: 062

REACTIONS (7)
  - Product administration error [Not Recovered/Not Resolved]
  - Device difficult to use [Not Recovered/Not Resolved]
  - Product dose omission issue [Recovered/Resolved]
  - Device breakage [Not Recovered/Not Resolved]
  - Device adhesion issue [Not Recovered/Not Resolved]
  - Product physical consistency issue [Not Recovered/Not Resolved]
  - No adverse event [Unknown]

NARRATIVE: CASE EVENT DATE: 20220306
